FAERS Safety Report 6435472-4 (Version None)
Quarter: 2009Q4

REPORT INFORMATION
  Report Type: 
  Country: None (occurrence: None)
  Receive Date: 20091110
  Receipt Date: 20091029
  Transmission Date: 20100525
  Serious: Yes (Hospitalization)
  Sender: FDA-Public Use
  Company Number: ES-ELI_LILLY_AND_COMPANY-ES200910007808

PATIENT
  Age: 32 Year
  Sex: Male

DRUGS (1)
  1. FORTEO [Suspect]
     Indication: OPEN FRACTURE
     Dosage: 20 UG, UNKNOWN
     Route: 058
     Dates: start: 20090101, end: 20090918

REACTIONS (2)
  - PNEUMONIA [None]
  - THROMBOSIS [None]
